FAERS Safety Report 15538465 (Version 3)
Quarter: 2021Q1

REPORT INFORMATION
  Report Type: Spontaneous
  Country: ES (occurrence: ES)
  Receive Date: 20181022
  Receipt Date: 20210128
  Transmission Date: 20210419
  Serious: Yes (Other)
  Sender: FDA-Public Use
  Company Number: ES-PFIZER INC-2018425338

PATIENT
  Age: 61 Year
  Sex: Female

DRUGS (6)
  1. TERBUTALINE [Suspect]
     Active Substance: TERBUTALINE
     Dosage: UNK
  2. DEFLAZACORT [Suspect]
     Active Substance: DEFLAZACORT
     Dosage: AS REQUIRED
  3. AZITHROMYCIN ANHYDROUS. [Suspect]
     Active Substance: AZITHROMYCIN ANHYDROUS
     Dosage: UNK
  4. MONTELUKAST SODIUM. [Suspect]
     Active Substance: MONTELUKAST SODIUM
     Dosage: UNK
  5. IPRATROPIUM BROMIDE AND ALBUTEROL SULFATE [Suspect]
     Active Substance: ALBUTEROL SULFATE\IPRATROPIUM BROMIDE
     Dosage: UNK UNK, 3X/DAY (EVERY EIGHT HOURS)
  6. SALMETEROL/FLUTICASONPROPIONAAT [Suspect]
     Active Substance: FLUTICASONE PROPIONATE\SALMETEROL XINAFOATE
     Dosage: 1500/150 MCG DAY

REACTIONS (3)
  - Respiratory alkalosis [Unknown]
  - Drug ineffective [Unknown]
  - Asthma [Recovering/Resolving]
